FAERS Safety Report 15808370 (Version 2)
Quarter: 2019Q1

REPORT INFORMATION
  Report Type: Spontaneous
  Country: SK (occurrence: SK)
  Receive Date: 20190110
  Receipt Date: 20190115
  Transmission Date: 20190417
  Serious: Yes (Hospitalization, Other)
  Sender: FDA-Public Use
  Company Number: SK-PFIZER INC-2019011035

PATIENT
  Age: 43 Year
  Sex: Male

DRUGS (1)
  1. METHYLPREDNISOLONE SODIUM SUCCINATE. [Suspect]
     Active Substance: METHYLPREDNISOLONE SODIUM SUCCINATE
     Indication: MULTIPLE SCLEROSIS
     Dosage: 4 G, PULSE THERAPY
     Route: 042

REACTIONS (9)
  - Pancytopenia [Unknown]
  - Hyperpyrexia [Recovered/Resolved]
  - Bicytopenia [Recovered/Resolved]
  - Sepsis [Unknown]
  - Hairy cell leukaemia [Recovering/Resolving]
  - C-reactive protein increased [Recovered/Resolved]
  - Candida infection [Recovered/Resolved]
  - Back pain [Unknown]
  - Splenomegaly [Unknown]

NARRATIVE: CASE EVENT DATE: 201601
